FAERS Safety Report 14474413 (Version 1)
Quarter: 2018Q1

REPORT INFORMATION
  Report Type: Spontaneous
  Country: US (occurrence: US)
  Receive Date: 20180131
  Receipt Date: 20180131
  Transmission Date: 20180509
  Serious: Yes (Death)
  Sender: FDA-Public Use
  Company Number: None

PATIENT
  Age: 58 Year
  Sex: Male

DRUGS (3)
  1. ZYTIGA [Concomitant]
     Active Substance: ABIRATERONE ACETATE
  2. PREDNISONE. [Concomitant]
     Active Substance: PREDNISONE
  3. LUPRON DEPOT [Suspect]
     Active Substance: LEUPROLIDE ACETATE
     Indication: NEOPLASM MALIGNANT
     Dosage: 22.5 MG EVERY 3 MONTHS INTRAMUSCULAR
     Route: 030
     Dates: start: 20170117

REACTIONS (1)
  - Death [None]

NARRATIVE: CASE EVENT DATE: 20180129
